FAERS Safety Report 8322699-X (Version None)
Quarter: 2012Q2

REPORT INFORMATION
  Report Type: 
  Country: None (occurrence: None)
  Receive Date: 20120430
  Receipt Date: 20120423
  Transmission Date: 20120825
  Serious: Yes (Hospitalization)
  Sender: FDA-Public Use
  Company Number: SE-ASTRAZENECA-2012SE26292

PATIENT
  Sex: Female

DRUGS (3)
  1. CALCIUM CHANNEL BLOCKER [Concomitant]
  2. METOPROLOL SUCCINATE [Suspect]
     Indication: HYPERTENSION
     Route: 048
  3. METOPROLOL SUCCINATE [Suspect]
     Indication: MIGRAINE
     Route: 048

REACTIONS (3)
  - BLOOD PRESSURE INCREASED [None]
  - DIPLOPIA [None]
  - DRUG INEFFECTIVE [None]
